FAERS Safety Report 17038830 (Version 1)
Quarter: 2019Q4

REPORT INFORMATION
  Report Type: Spontaneous
  Country: ES (occurrence: ES)
  Receive Date: 20191115
  Receipt Date: 20191115
  Transmission Date: 20200122
  Serious: Yes (Life-Threatening)
  Sender: FDA-Public Use
  Company Number: ES-MYLANLABS-2019M1109407

PATIENT
  Age: 42 Year
  Sex: Male

DRUGS (2)
  1. CLOPIXOL ACUPHASE [Suspect]
     Active Substance: ZUCLOPENTHIXOL ACETATE
     Indication: PSYCHOTIC DISORDER
     Dosage: 50 MILLIGRAM, TOTAL
     Route: 048
     Dates: start: 20190417, end: 20190417
  2. RISPERIDONE. [Suspect]
     Active Substance: RISPERIDONE
     Indication: PSYCHOTIC DISORDER
     Dosage: 1 MILLIGRAM, QD
     Route: 048
     Dates: start: 20190417, end: 20190419

REACTIONS (2)
  - Coma [Recovered/Resolved with Sequelae]
  - Cerebral artery thrombosis [Recovered/Resolved with Sequelae]

NARRATIVE: CASE EVENT DATE: 20190419
